FAERS Safety Report 6272243-6 (Version None)
Quarter: 2009Q3

REPORT INFORMATION
  Report Type: 
  Country: None (occurrence: None)
  Receive Date: 20090717
  Receipt Date: 20090710
  Transmission Date: 20100115
  Serious: Yes (Other)
  Sender: FDA-Public Use
  Company Number: US-JNJFOC-20090704340

PATIENT
  Sex: Female
  Weight: 102.06 kg

DRUGS (3)
  1. RISPERDAL [Suspect]
     Indication: PANIC ATTACK
     Route: 048
  2. LOPRESSOR [Concomitant]
     Indication: HYPERTENSION
     Route: 048
  3. SYNTHROID [Concomitant]
     Indication: THYROID DISORDER
     Route: 048

REACTIONS (5)
  - DEPRESSION [None]
  - GASTROOESOPHAGEAL REFLUX DISEASE [None]
  - PANIC ATTACK [None]
  - SLEEP DISORDER [None]
  - SWOLLEN TONGUE [None]
